FAERS Safety Report 5202162-5 (Version None)
Quarter: 2007Q1

REPORT INFORMATION
  Report Type: 
  Country: None (occurrence: None)
  Receive Date: 20070109
  Receipt Date: 20070102
  Transmission Date: 20070707
  Serious: Yes (Hospitalization)
  Sender: FDA-Public Use
  Company Number: DE-ROCHE-476782

PATIENT
  Age: 52 Year
  Sex: Female
  Weight: 96 kg

DRUGS (5)
  1. KEVATRIL [Suspect]
     Indication: ANTIEMETIC SUPPORTIVE CARE
     Route: 042
  2. DOCETAXEL [Suspect]
     Indication: BREAST CANCER
     Dosage: FREQUENCY REPORTED AS ^D1 Q D21^, FORM REOPRTED AS INFUSION.
     Route: 042
     Dates: start: 20061116, end: 20061228
  3. ENAHEXAL COMP [Concomitant]
     Dosage: TOTAL DAILY DOSE REORTED AS 10/25MG
  4. METOHEXAL RETARD [Concomitant]
     Dosage: DRUG REPORTED AS ^METOHEXAL RET^
  5. ENAHEXAL [Concomitant]

REACTIONS (1)
  - SYNCOPE [None]
